FAERS Safety Report 5774870-9 (Version None)
Quarter: 2008Q2

REPORT INFORMATION
  Report Type: 
  Country: None (occurrence: None)
  Receive Date: 20080617
  Receipt Date: 20080605
  Transmission Date: 20081010
  Serious: Yes (Other)
  Sender: FDA-Public Use
  Company Number: US-ELI_LILLY_AND_COMPANY-US200806001421

PATIENT
  Age: 69 Year
  Sex: Female

DRUGS (2)
  1. XIGRIS [Suspect]
     Indication: SEPSIS
     Dates: start: 20080501, end: 20080501
  2. OXYGEN [Concomitant]
     Dates: end: 20080101

REACTIONS (1)
  - PLATELET COUNT DECREASED [None]
